FAERS Safety Report 5405378-8 (Version None)
Quarter: 2007Q3

REPORT INFORMATION
  Report Type: 
  Country: None (occurrence: None)
  Receive Date: 20070803
  Receipt Date: 20070724
  Transmission Date: 20080115
  Serious: Yes (Other)
  Sender: FDA-Public Use
  Company Number: US-PFIZER INC-2002072827

PATIENT
  Sex: Male
  Weight: 64.4 kg

DRUGS (2)
  1. LIPITOR [Suspect]
     Indication: HIGH DENSITY LIPOPROTEIN DECREASED
     Dosage: DAILY DOSE:10MG
     Route: 048
     Dates: start: 20010301, end: 20020101
  2. GLYNASE [Suspect]

REACTIONS (3)
  - LOW DENSITY LIPOPROTEIN DECREASED [None]
  - LYMPHOMA [None]
  - PROSTATE CANCER [None]
